FAERS Safety Report 16305533 (Version 2)
Quarter: 2019Q2

REPORT INFORMATION
  Report Type: Spontaneous
  Country: US (occurrence: US)
  Receive Date: 20190513
  Receipt Date: 20190604
  Transmission Date: 20190711
  Serious: Yes (Hospitalization)
  Sender: FDA-Public Use
  Company Number: US-CELGENEUS-USA-20190503926

PATIENT
  Age: 55 Year
  Sex: Male

DRUGS (20)
  1. DURVALUMAB. [Suspect]
     Active Substance: DURVALUMAB
     Dosage: 1500 MG
     Route: 042
     Dates: start: 20190301, end: 20190301
  2. CARBOPLATIN. [Suspect]
     Active Substance: CARBOPLATIN
     Dosage: 388 MILLIGRAM
     Route: 042
     Dates: start: 20190208, end: 20190208
  3. ABRAXANE [Suspect]
     Active Substance: PACLITAXEL
     Dosage: 203 MG
     Route: 042
     Dates: start: 20190412, end: 20190412
  4. DURVALUMAB. [Suspect]
     Active Substance: DURVALUMAB
     Indication: NON-SMALL CELL LUNG CANCER STAGE IV
     Dosage: 1500 MG
     Route: 042
     Dates: start: 20190118, end: 20190118
  5. CARBOPLATIN. [Suspect]
     Active Substance: CARBOPLATIN
     Indication: NON-SMALL CELL LUNG CANCER STAGE IV
     Dosage: 388 MILLIGRAM
     Route: 042
     Dates: start: 20190118, end: 20190118
  6. ABRAXANE [Suspect]
     Active Substance: PACLITAXEL
     Indication: NON-SMALL CELL LUNG CANCER STAGE IV
     Dosage: 203 MG
     Route: 042
     Dates: start: 20190118, end: 20190118
  7. ABRAXANE [Suspect]
     Active Substance: PACLITAXEL
     Dosage: 203 MG
     Route: 042
     Dates: start: 20190125, end: 20190125
  8. ABRAXANE [Suspect]
     Active Substance: PACLITAXEL
     Dosage: 203 MG
     Route: 042
     Dates: start: 20190201, end: 20190201
  9. ABRAXANE [Suspect]
     Active Substance: PACLITAXEL
     Dosage: 203 MG
     Route: 042
     Dates: start: 20190405, end: 20190405
  10. ABRAXANE [Suspect]
     Active Substance: PACLITAXEL
     Dosage: 203 MG
     Route: 042
     Dates: start: 20190208, end: 20190208
  11. DURVALUMAB. [Suspect]
     Active Substance: DURVALUMAB
     Dosage: 1500 MG
     Route: 042
     Dates: start: 20190329, end: 20190329
  12. CARBOPLATIN. [Suspect]
     Active Substance: CARBOPLATIN
     Dosage: 388 MILLIGRAM
     Route: 042
     Dates: start: 20190329, end: 20190329
  13. ABRAXANE [Suspect]
     Active Substance: PACLITAXEL
     Dosage: 203 MG
     Route: 042
     Dates: start: 20190215, end: 20190215
  14. ABRAXANE [Suspect]
     Active Substance: PACLITAXEL
     Dosage: 203 MG
     Route: 042
     Dates: start: 20190222, end: 20190222
  15. ABRAXANE [Suspect]
     Active Substance: PACLITAXEL
     Dosage: 203 MG
     Route: 042
     Dates: start: 20190301, end: 20190301
  16. ABRAXANE [Suspect]
     Active Substance: PACLITAXEL
     Dosage: 203 MG
     Route: 042
     Dates: start: 20190329, end: 20190329
  17. ABRAXANE [Suspect]
     Active Substance: PACLITAXEL
     Dosage: 203 MG
     Route: 042
     Dates: start: 20190322, end: 20190322
  18. ABRAXANE [Suspect]
     Active Substance: PACLITAXEL
     Dosage: 203 MG
     Route: 042
     Dates: start: 20190315, end: 20190315
  19. DURVALUMAB. [Suspect]
     Active Substance: DURVALUMAB
     Dosage: 1500 MG
     Route: 042
     Dates: start: 20190208, end: 20190208
  20. CARBOPLATIN. [Suspect]
     Active Substance: CARBOPLATIN
     Dosage: 388 MILLIGRAM
     Route: 042
     Dates: start: 20190301, end: 20190301

REACTIONS (1)
  - Pneumonia [Recovered/Resolved]

NARRATIVE: CASE EVENT DATE: 20190428
